FAERS Safety Report 6649991-9 (Version None)
Quarter: 2010Q1

REPORT INFORMATION
  Report Type: 
  Country: None (occurrence: None)
  Receive Date: 20100324
  Receipt Date: 20100324
  Transmission Date: 20100710
  Serious: Yes (Life-Threatening, Disabling)
  Sender: FDA-Public Use
  Company Number: None

PATIENT
  Sex: Male
  Weight: 83.9154 kg

DRUGS (2)
  1. LASIX [Suspect]
     Indication: HYPERTENSION
     Dosage: 20MG X1 PER DAY ORAL
     Route: 048
     Dates: start: 20091222
  2. LASIX [Suspect]
     Indication: HYPERTENSION
     Dosage: 20MG X1 PER DAY ORAL
     Route: 048
     Dates: start: 20100201

REACTIONS (4)
  - DIABETES MELLITUS [None]
  - DRY SKIN [None]
  - SKIN CHAPPED [None]
  - VISION BLURRED [None]
